FAERS Safety Report 25591819 (Version 1)
Quarter: 2025Q3

REPORT INFORMATION
  Report Type: Report from Study
  Country: US (occurrence: US)
  Receive Date: 20250722
  Receipt Date: 20250722
  Transmission Date: 20251020
  Serious: No
  Sender: VANDA PHARMACEUTICALS
  Company Number: US-VANDA PHARMACEUTICALS, INC-2024TASUS007401

PATIENT
  Sex: Male
  Weight: 49.887 kg

DRUGS (1)
  1. HETLIOZ LQ [Suspect]
     Active Substance: TASIMELTEON
     Indication: Smith-Magenis syndrome
     Route: 048
     Dates: start: 202405

REACTIONS (1)
  - Generalised tonic-clonic seizure [Unknown]
